FAERS Safety Report 24686518 (Version 1)
Quarter: 2024Q4

REPORT INFORMATION
  Report Type: Spontaneous
  Country: US (occurrence: None)
  Receive Date: 20241129
  Receipt Date: 20241129
  Transmission Date: 20250115
  Serious: Yes (Congenital Anomaly)
  Sender: Public
  Company Number: None

PATIENT
  Age: 20 Year
  Sex: Female
  Weight: 55.8 kg

DRUGS (1)
  1. AZITHROMYCIN [Suspect]
     Active Substance: AZITHROMYCIN
     Indication: Chlamydial infection
     Dosage: OTHER FREQUENCY : ONCE;?
     Route: 048

REACTIONS (3)
  - Maternal exposure during pregnancy [None]
  - Foetal death [None]
  - Foetal exposure during pregnancy [None]

NARRATIVE: CASE EVENT DATE: 20241127
